FAERS Safety Report 12089657 (Version 2)
Quarter: 2016Q1

REPORT INFORMATION
  Report Type: Spontaneous
  Country: US (occurrence: US)
  Receive Date: 20160218
  Receipt Date: 20160310
  Transmission Date: 20160526
  Serious: Yes (Death)
  Sender: FDA-Public Use
  Company Number: US-PFIZER INC-2016081699

PATIENT
  Age: 6 Decade
  Sex: Female
  Weight: 78 kg

DRUGS (1)
  1. IBRANCE [Suspect]
     Active Substance: PALBOCICLIB
     Indication: CHORDOMA
     Dosage: 125MG CAPSULE, ONCE DAILY FOR 21 DAYS, THEN OFF 7
     Route: 048

REACTIONS (10)
  - Product use issue [Unknown]
  - Fall [Unknown]
  - Joint dislocation [Unknown]
  - Pain [Not Recovered/Not Resolved]
  - Secretion discharge [Not Recovered/Not Resolved]
  - Weight decreased [Unknown]
  - Death [Fatal]
  - Malaise [Not Recovered/Not Resolved]
  - Limb injury [Unknown]
  - Balance disorder [Not Recovered/Not Resolved]

NARRATIVE: CASE EVENT DATE: 201512
